FAERS Safety Report 18591415 (Version 1)
Quarter: 2020Q4

REPORT INFORMATION
  Report Type: Spontaneous
  Country: IT (occurrence: IT)
  Receive Date: 20201208
  Receipt Date: 20201208
  Transmission Date: 20210114
  Serious: Yes (Other)
  Sender: FDA-Public Use
  Company Number: IT-TEVA-2020-IT-1855564

PATIENT
  Age: 6 Year
  Sex: Male
  Weight: 24 kg

DRUGS (8)
  1. ZOFRAN [Concomitant]
     Active Substance: ONDANSETRON HYDROCHLORIDE
     Dosage: 21 MG
     Route: 042
  2. CONTRAMAL [Concomitant]
     Active Substance: TRAMADOL HYDROCHLORIDE
     Dosage: 10 GTT
     Route: 048
  3. ANTRA [Concomitant]
     Active Substance: OMEPRAZOLE
     Dosage: 25 MG
     Route: 042
  4. CISPLATIN. [Suspect]
     Active Substance: CISPLATIN
     Indication: HEPATIC NEOPLASM
     Dosage: 73.6 MG
     Route: 042
     Dates: start: 20191205, end: 20191220
  5. TRIMETON [Concomitant]
     Active Substance: CHLORPHENIRAMINE MALEATE
     Dosage: 12 MG
     Route: 042
  6. DOXORUBICIN HYDROCHLORIDE. [Suspect]
     Active Substance: DOXORUBICIN HYDROCHLORIDE
     Indication: HEPATIC NEOPLASM
     Dosage: 27 MG
     Route: 042
     Dates: start: 20191213, end: 20191220
  7. DECADRON [Concomitant]
     Active Substance: DEXAMETHASONE
     Dosage: 6 MG
     Route: 042
  8. FASTURTEC [Concomitant]
     Active Substance: RASBURICASE
     Dosage: 4.8 MG
     Route: 042

REACTIONS (3)
  - Epistaxis [Recovering/Resolving]
  - Thrombocytopenia [Recovering/Resolving]
  - Anaemia [Recovering/Resolving]

NARRATIVE: CASE EVENT DATE: 20191223
